FAERS Safety Report 5122361-0 (Version None)
Quarter: 2006Q4

REPORT INFORMATION
  Report Type: 
  Country: None (occurrence: None)
  Receive Date: 20061004
  Receipt Date: 20060919
  Transmission Date: 20070319
  Serious: Yes (Disabling)
  Sender: FDA-Public Use
  Company Number: 008630

PATIENT
  Age: 18 Year
  Sex: Female
  Weight: 59 kg

DRUGS (5)
  1. SEASONALE [Suspect]
     Indication: PREMATURE MENOPAUSE
     Dosage: 1 TABLET, QD, ORAL
     Route: 048
     Dates: start: 20060716
  2. ZYRTEC [Concomitant]
  3. VITAMINS [Concomitant]
  4. CALCIUM (CALCIUM) [Concomitant]
  5. FLONASE [Concomitant]

REACTIONS (4)
  - ANTINUCLEAR ANTIBODY INCREASED [None]
  - DEAFNESS BILATERAL [None]
  - METRORRHAGIA [None]
  - TINNITUS [None]
